FAERS Safety Report 5144266-1 (Version None)
Quarter: 2006Q4

REPORT INFORMATION
  Report Type: 
  Country: None (occurrence: None)
  Receive Date: 20061102
  Receipt Date: 20061102
  Transmission Date: 20070319
  Serious: Yes (Hospitalization, Other)
  Sender: FDA-Public Use
  Company Number: None

PATIENT
  Age: 85 Year
  Sex: Female
  Weight: 61 kg

DRUGS (2)
  1. INTEGRELIN 11.2MG [Suspect]
     Indication: CORONARY ANGIOPLASTY
     Dosage: 2MCG/KG/MIN X2 IV BOLUS
     Route: 040
     Dates: start: 20061031, end: 20061031
  2. INTEGRELIN 11.2MG [Suspect]

REACTIONS (1)
  - THROMBOCYTOPENIA [None]
